FAERS Safety Report 19506708 (Version 6)
Quarter: 2023Q1

REPORT INFORMATION
  Report Type: Spontaneous
  Country: US (occurrence: US)
  Receive Date: 20210708
  Receipt Date: 20230103
  Transmission Date: 20230417
  Serious: No
  Sender: FDA-Public Use
  Company Number: US-PFIZER INC-2021782511

PATIENT
  Age: 56 Year
  Sex: Female

DRUGS (2)
  1. IBRANCE [Suspect]
     Active Substance: PALBOCICLIB
     Indication: Breast cancer female
     Dosage: 1 TABLET ONCE DAILY FOR 21 DAYS, THEN 7 DAYS OFF
     Route: 048
     Dates: start: 20210210, end: 202211
  2. EVEROLIMUS [Concomitant]
     Active Substance: EVEROLIMUS
     Dosage: 10 MG (7 TAB/CARD)

REACTIONS (7)
  - Oropharyngeal pain [Unknown]
  - Dry mouth [Unknown]
  - Nausea [Unknown]
  - Full blood count decreased [Unknown]
  - Decreased appetite [Unknown]
  - Neoplasm progression [Unknown]
  - Product dose omission issue [Unknown]
